FAERS Safety Report 9526501 (Version 1)
Quarter: 2013Q3

REPORT INFORMATION
  Report Type: Spontaneous
  Country: NL (occurrence: NL)
  Receive Date: 20130916
  Receipt Date: 20130916
  Transmission Date: 20140515
  Serious: Yes (Life-Threatening)
  Sender: FDA-Public Use
  Company Number: NL-TEVA-431603ISR

PATIENT
  Age: 47 Year
  Sex: Female
  Weight: 56 kg

DRUGS (6)
  1. AZILECT TABLET 1MG [Suspect]
     Indication: PARKINSON^S DISEASE
     Dosage: 1 MILLIGRAM DAILY; 1 TIMES PER DAY 1 MG
     Dates: start: 200704
  2. MAXALT SMELTTABLET 10 MG [Suspect]
     Dosage: 10 MILLIGRAM DAILY; TIMES PER DAY AS NECESSARY
     Dates: start: 2000
  3. STALEVO TABLET FILMOMHULD 100/25/200MG [Concomitant]
     Dosage: 3 TIMES A DAY 1 DF 100/25/200MG
     Dates: start: 200510
  4. REQUIB MODUTAB TABLET MVA 4MG [Concomitant]
     Dosage: 8 MILLIGRAM DAILY; 2 TIMES PER DAY 4 MG
  5. METOPROLOL TABLET MGA 50 MG [Concomitant]
     Dosage: 50 MILLIGRAM DAILY; 1 TIMES PER DAY 50 MG, EXTRA INFO: AFTER ANALYSIS 2012 IT HAS BEEN 100MG.
     Dates: start: 2006
  6. HYDROCHLORTHIAZIDE TABLET 25MG [Concomitant]
     Dosage: 25 MILLIGRAM DAILY; 1 TIMES PER DAYS 25 MG
     Dates: start: 2006, end: 201308

REACTIONS (3)
  - Hypertension [Recovered/Resolved]
  - Arthralgia [Recovered/Resolved]
  - Myalgia [Recovered/Resolved]
